FAERS Safety Report 18795142 (Version 6)
Quarter: 2022Q3

REPORT INFORMATION
  Report Type: Spontaneous
  Country: US (occurrence: US)
  Receive Date: 20210127
  Receipt Date: 20220829
  Transmission Date: 20221027
  Serious: No
  Sender: FDA-Public Use
  Company Number: US-PFIZER INC-2021062677

PATIENT
  Age: 72 Year
  Sex: Female

DRUGS (1)
  1. XELJANZ [Suspect]
     Active Substance: TOFACITINIB CITRATE
     Dosage: 5 MG

REACTIONS (4)
  - Product dose omission issue [Unknown]
  - Pain [Unknown]
  - Loss of personal independence in daily activities [Unknown]
  - Somnolence [Unknown]
